FAERS Safety Report 6134659-8 (Version None)
Quarter: 2009Q1

REPORT INFORMATION
  Report Type: 
  Country: None (occurrence: None)
  Receive Date: 20090327
  Receipt Date: 20090320
  Transmission Date: 20090719
  Serious: Yes (Hospitalization)
  Sender: FDA-Public Use
  Company Number: US-BIOGENIDEC-2009BI008182

PATIENT
  Age: 55 Year
  Sex: Female
  Weight: 59 kg

DRUGS (21)
  1. TYSABRI [Suspect]
     Indication: CROHN'S DISEASE
     Dates: start: 20081204
  2. VICODIN [Concomitant]
  3. DARVOCET [Concomitant]
  4. ALBUTEROL [Concomitant]
  5. KLONOPIN [Concomitant]
  6. FLEXERIL [Concomitant]
  7. DEXAMETHASONE [Concomitant]
  8. CYMBALTA [Concomitant]
  9. ADVAIR HFA [Concomitant]
  10. PREVACID [Concomitant]
  11. SYNTHROID [Concomitant]
  12. IRON [Concomitant]
  13. NASONEX [Concomitant]
  14. LYRICA [Concomitant]
  15. PROMETHAZINE [Concomitant]
  16. SULFASALAZINE [Concomitant]
  17. ULTRACET [Concomitant]
  18. DESYREL [Concomitant]
  19. VITAMIN E [Concomitant]
  20. CEFTIN [Concomitant]
  21. PREDNISONE [Concomitant]
     Indication: DRUG USE FOR UNKNOWN INDICATION
     Dates: start: 20081205, end: 20090101

REACTIONS (3)
  - HYPOTENSION [None]
  - LEUKOCYTOSIS [None]
  - PNEUMONIA [None]
